FAERS Safety Report 10415014 (Version 2)
Quarter: 2014Q4

REPORT INFORMATION
  Report Type: Spontaneous
  Country: US (occurrence: None)
  Receive Date: 20140604
  Receipt Date: 20141010
  Transmission Date: 20150528
  Serious: No
  Sender: FDA-Public Use
  Company Number: 163-POMAL-14030592

PATIENT
  Age: 77 Year
  Sex: Male

DRUGS (14)
  1. OMEPRAZOLE (OMEPRAZOLE) [Concomitant]
     Active Substance: OMEPRAZOLE
  2. ACYCLOVIR (ACICLOVIR) [Concomitant]
  3. EFUDEX (FLUOURACIL) [Concomitant]
  4. CYANOCOBALAMIN (CYANOCOBALAMIN) [Concomitant]
  5. BENADRYL ALLERGY (BENADRYL ALLERGY) [Concomitant]
  6. LOPID [Concomitant]
     Active Substance: GEMFIBROZIL
  7. FISH OIL (FISH OIL) [Concomitant]
     Active Substance: FISH OIL
  8. ISTALOL (TIMOLOL MALEATE) [Concomitant]
  9. FOLIC ACID (FOLIC ACID) [Concomitant]
     Active Substance: FOLIC ACID
  10. VELCADE [Concomitant]
     Active Substance: BORTEZOMIB
  11. POMALYST [Suspect]
     Active Substance: POMALIDOMIDE
     Indication: PLASMA CELL MYELOMA
     Dosage: 14 IN 14 D
     Route: 048
     Dates: start: 20131205
  12. DEXAMETHASONE (DEXAMETHASONE) [Concomitant]
     Active Substance: DEXAMETHASONE
  13. ATIVAN [Concomitant]
     Active Substance: LORAZEPAM
  14. LASIX [Concomitant]
     Active Substance: FUROSEMIDE

REACTIONS (7)
  - Diarrhoea [None]
  - Pruritus [None]
  - Full blood count decreased [None]
  - Anaemia [None]
  - Oral infection [None]
  - Nausea [None]
  - Asthenia [None]
